FAERS Safety Report 8279281-2 (Version None)
Quarter: 2012Q2

REPORT INFORMATION
  Report Type: 
  Country: None (occurrence: None)
  Receive Date: 20120412
  Receipt Date: 20120327
  Transmission Date: 20120825
  Serious: Yes (Hospitalization, Other)
  Sender: FDA-Public Use
  Company Number: CHPA2012US006016

PATIENT
  Sex: Female

DRUGS (2)
  1. EXCEDRIN EXTRA STRENGTH TABLETS [Suspect]
     Indication: BACK PAIN
     Dosage: 2-8 DF, QD
     Route: 048
  2. VICODIN [Suspect]
     Indication: BACK PAIN
     Dosage: UNK

REACTIONS (7)
  - DRUG ADMINISTRATION ERROR [None]
  - CONVULSION [None]
  - INTRACRANIAL ANEURYSM [None]
  - COMA [None]
  - CEREBROVASCULAR ACCIDENT [None]
  - BLADDER CANCER [None]
  - INCORRECT DRUG ADMINISTRATION DURATION [None]
